FAERS Safety Report 12280446 (Version 1)
Quarter: 2016Q2

REPORT INFORMATION
  Report Type: Spontaneous
  Country: TN (occurrence: TN)
  Receive Date: 20160419
  Receipt Date: 20160419
  Transmission Date: 20160815
  Serious: Yes (Death)
  Sender: FDA-Public Use
  Company Number: TN-PFIZER INC-2016217491

PATIENT

DRUGS (5)
  1. PIPERACILLIN/TAZOBACTAM [Suspect]
     Active Substance: PIPERACILLIN SODIUM\TAZOBACTAM SODIUM
     Indication: PYREXIA
     Dosage: 200 MG/KG, DAILY (FOUR INJECTIONS)
  2. METRONIDAZOLE. [Concomitant]
     Active Substance: METRONIDAZOLE
     Indication: PYREXIA
     Dosage: UNK
  3. IMIPENEM [Suspect]
     Active Substance: IMIPENEM
     Indication: PYREXIA
     Dosage: 50 MG/KG, DAILY (FOUR INJECTIONS)
  4. AMIKACIN [Suspect]
     Active Substance: AMIKACIN
     Indication: PYREXIA
     Dosage: UNK
  5. ERTAPENEM [Suspect]
     Active Substance: ERTAPENEM
     Indication: PYREXIA
     Dosage: 1 G, DAILY

REACTIONS (2)
  - Drug resistance [Fatal]
  - Drug ineffective [Fatal]
